FAERS Safety Report 5086160-0 (Version None)
Quarter: 2006Q3

REPORT INFORMATION
  Report Type: 
  Country: None (occurrence: None)
  Receive Date: 20060818
  Receipt Date: 20060808
  Transmission Date: 20061208
  Serious: Yes (Other)
  Sender: FDA-Public Use
  Company Number: 2006097127

PATIENT
  Age: 52 Year
  Sex: Female

DRUGS (4)
  1. AROMASIN [Suspect]
     Indication: DRUG USE FOR UNKNOWN INDICATION
     Dosage: 25 MG (DAILY), ORAL
     Route: 048
     Dates: start: 20040401
  2. BLOPPRESS                   (CANDESARTAN CILEXETIL) [Concomitant]
  3. VALPROATE SODIUM [Concomitant]
  4. CONIEL          (BENIDIPINE HYDROCHLORIDE) [Concomitant]

REACTIONS (1)
  - METRORRHAGIA [None]
